FAERS Safety Report 10544845 (Version 5)
Quarter: 2014Q4

REPORT INFORMATION
  Report Type: Spontaneous
  Country: GB (occurrence: GB)
  Receive Date: 20141027
  Receipt Date: 20141216
  Transmission Date: 20150529
  Serious: Yes (Death, Other)
  Sender: FDA-Public Use
  Company Number: PHFR2014GB007320

PATIENT
  Age: 39 Year
  Sex: Male
  Weight: 90 kg

DRUGS (3)
  1. SIMVADOR [Concomitant]
     Active Substance: SIMVASTATIN
     Indication: BLOOD CHOLESTEROL INCREASED
     Dosage: 40 MG, QD
     Route: 048
  2. CLOZARIL [Suspect]
     Active Substance: CLOZAPINE
     Indication: SCHIZOPHRENIA
     Dosage: 500 MG, QD
     Route: 048
     Dates: start: 200712
  3. LANSOPRAZOLE. [Concomitant]
     Active Substance: LANSOPRAZOLE
     Indication: PRODUCT USED FOR UNKNOWN INDICATION
     Dosage: 30 MG, QD
     Route: 048

REACTIONS (15)
  - Renal impairment [Unknown]
  - Acute left ventricular failure [Fatal]
  - Acute pulmonary oedema [Fatal]
  - Ventricular hypertrophy [Fatal]
  - Hyperglycaemia [Fatal]
  - White blood cell count increased [Not Recovered/Not Resolved]
  - Alanine aminotransferase increased [Unknown]
  - Pericardial effusion [Unknown]
  - Neutrophil count increased [Not Recovered/Not Resolved]
  - Diabetes mellitus inadequate control [Fatal]
  - C-reactive protein increased [Unknown]
  - Infection [Unknown]
  - Blood sodium decreased [Unknown]
  - Cardiomegaly [Fatal]
  - Bronchitis bacterial [Unknown]

NARRATIVE: CASE EVENT DATE: 2013
